FAERS Safety Report 25194942 (Version 1)
Quarter: 2025Q2

REPORT INFORMATION
  Report Type: Report from Study
  Country: US (occurrence: US)
  Receive Date: 20250415
  Receipt Date: 20250415
  Transmission Date: 20250716
  Serious: Yes (Other)
  Sender: ABBVIE
  Company Number: US-ABBVIE-6221937

PATIENT
  Sex: Male
  Weight: 3 kg

DRUGS (12)
  1. ORILISSA [Suspect]
     Active Substance: ELAGOLIX SODIUM
     Indication: Maternal exposure timing unspecified
     Route: 064
  2. HYDROCORTISONE [Concomitant]
     Active Substance: HYDROCORTISONE
     Indication: Dermatitis diaper
     Route: 061
     Dates: start: 20240607, end: 20240615
  3. HUMAN HEPATITIS B VIRUS IMMUNE GLOBULIN [Concomitant]
     Active Substance: HUMAN HEPATITIS B VIRUS IMMUNE GLOBULIN
     Indication: Hepatitis B immunisation
     Dates: start: 20240421, end: 20240421
  4. HUMAN HEPATITIS B VIRUS IMMUNE GLOBULIN [Concomitant]
     Active Substance: HUMAN HEPATITIS B VIRUS IMMUNE GLOBULIN
     Indication: Hepatitis B immunisation
     Dates: start: 20241104, end: 20241104
  5. VITAMIN K [Concomitant]
     Active Substance: PHYTONADIONE
     Indication: Product used for unknown indication
     Dates: start: 20240421
  6. DIPHTHERIA AND TETANUS TOXOIDS AND ACELLULAR PERTUSSIS VACCINE ADSORBE [Concomitant]
     Active Substance: DIPHTHERIA AND TETANUS TOXOIDS AND ACELLULAR PERTUSSIS VACCINE ADSORBED
     Indication: Immunisation
     Dates: start: 20241104, end: 20241104
  7. HAEMOPHILUS B CONJUGATE VACCINE NOS [Concomitant]
     Active Substance: HAEMOPHILUS B CONJUGATE VACCINE
     Indication: Haemophilus influenzae type b immunisation
     Dates: start: 20241104, end: 20241104
  8. INFLUENZA VIRUS VACCINE [Concomitant]
     Active Substance: INFLUENZA VIRUS VACCINE
     Indication: Influenza immunisation
     Dates: start: 20241104, end: 20241104
  9. Pneumococcal conjugate vaccines [Concomitant]
     Indication: Pneumococcal immunisation
     Dates: start: 20241104, end: 20241104
  10. POLIOVIRUS VACCINE INACTIVATED NOS [Concomitant]
     Active Substance: POLIOVIRUS TYPE 1 ANTIGEN (FORMALDEHYDE INACTIVATED)\POLIOVIRUS TYPE 2 ANTIGEN (FORMALDEHYDE INACTIV
     Indication: Polio immunisation
     Dates: start: 20241104, end: 20241104
  11. HUMAN ROTAVIRUS A [Concomitant]
     Active Substance: HUMAN ROTAVIRUS A
     Indication: Rotavirus immunisation
     Dates: start: 20241028, end: 20241028
  12. NIRSEVIMAB [Concomitant]
     Active Substance: NIRSEVIMAB
     Indication: Product used for unknown indication
     Dates: start: 20241104, end: 20241104

REACTIONS (2)
  - Gastrooesophageal reflux disease [Not Recovered/Not Resolved]
  - Foetal exposure during pregnancy [Unknown]

NARRATIVE: CASE EVENT DATE: 20240501
